FAERS Safety Report 5509822-7 (Version None)
Quarter: 2007Q4

REPORT INFORMATION
  Report Type: 
  Country: None (occurrence: None)
  Receive Date: 20071108
  Receipt Date: 20071030
  Transmission Date: 20080405
  Serious: Yes (Hospitalization)
  Sender: FDA-Public Use
  Company Number: US-ASTRAZENECA-2007UW02076

PATIENT
  Age: 514 Month
  Sex: Female
  Weight: 127.3 kg

DRUGS (4)
  1. SEROQUEL [Suspect]
     Indication: DEPRESSION
     Route: 048
     Dates: start: 19970101
  2. SEROQUEL [Suspect]
     Indication: POST-TRAUMATIC STRESS DISORDER
     Route: 048
     Dates: start: 19970101
  3. SEROQUEL [Suspect]
     Dosage: 25-200 MG ON 10-SEP-2002-AUG-2004, 200-300MG ON SEP-2004 TO PRESENT
     Route: 048
     Dates: start: 20020910
  4. SEROQUEL [Suspect]
     Dosage: 25-200 MG ON 10-SEP-2002-AUG-2004, 200-300MG ON SEP-2004 TO PRESENT
     Route: 048
     Dates: start: 20020910

REACTIONS (4)
  - CARDIAC ARREST [None]
  - HYPERTENSION [None]
  - HYPOTHYROIDISM [None]
  - TYPE 2 DIABETES MELLITUS [None]
